FAERS Safety Report 7589384-3 (Version None)
Quarter: 2011Q3

REPORT INFORMATION
  Report Type: 
  Country: None (occurrence: None)
  Receive Date: 20110705
  Receipt Date: 20110622
  Transmission Date: 20111222
  Serious: Yes (Hospitalization)
  Sender: FDA-Public Use
  Company Number: GR-ELI_LILLY_AND_COMPANY-GR201106003497

PATIENT
  Age: 43 Year
  Sex: Male
  Weight: 72 kg

DRUGS (1)
  1. OLANZAPINE [Suspect]
     Indication: PSYCHOTIC DISORDER
     Dosage: 300 MG, OTHER
     Route: 030
     Dates: start: 20110301

REACTIONS (9)
  - DYSARTHRIA [None]
  - FATIGUE [None]
  - CONFUSIONAL STATE [None]
  - SEDATION [None]
  - BLOOD PRESSURE DECREASED [None]
  - ASTHENIA [None]
  - HYPERHIDROSIS [None]
  - ANXIETY [None]
  - ATAXIA [None]
